FAERS Safety Report 16368854 (Version 3)
Quarter: 2020Q1

REPORT INFORMATION
  Report Type: Spontaneous
  Country: FR (occurrence: FR)
  Receive Date: 20190529
  Receipt Date: 20200325
  Transmission Date: 20200409
  Serious: Yes (Hospitalization)
  Sender: FDA-Public Use
  Company Number: FR-PFIZER INC-2019219858

PATIENT
  Age: 1 Day
  Sex: Male
  Weight: 4.8 kg

DRUGS (1)
  1. PROSTINE VR [Suspect]
     Active Substance: ALPROSTADIL
     Indication: AORTA HYPOPLASIA
     Dosage: 0.01 UG/KG, UNK
     Route: 042
     Dates: start: 20181219

REACTIONS (4)
  - Infantile apnoea [Recovering/Resolving]
  - Neonatal hypoxia [Recovering/Resolving]
  - Bradycardia neonatal [Recovering/Resolving]
  - Malaise [Recovering/Resolving]

NARRATIVE: CASE EVENT DATE: 20181220
